FAERS Safety Report 17705753 (Version 2)
Quarter: 2020Q2

REPORT INFORMATION
  Report Type: Report from Study
  Country: US (occurrence: US)
  Receive Date: 20200424
  Receipt Date: 20200428
  Transmission Date: 20200714
  Serious: Yes (Hospitalization)
  Sender: FDA-Public Use
  Company Number: US-PFIZER INC-2020161398

PATIENT
  Age: 78 Year
  Sex: Female
  Weight: 57 kg

DRUGS (5)
  1. FLUOROURACIL. [Suspect]
     Active Substance: FLUOROURACIL
     Indication: GASTRIC CANCER STAGE IV
     Dosage: UNK UNK, CYCLIC (ONCE EVERY 2 WEEKS)
     Route: 042
     Dates: start: 20191022, end: 20200303
  2. TRASTUZUMAB. [Suspect]
     Active Substance: TRASTUZUMAB
     Indication: GASTRIC CANCER STAGE IV
     Dosage: 252 MG, CYCLIC (ONCE EVERY 2 WEEKS)
     Route: 042
     Dates: start: 20191022, end: 20200331
  3. OXALIPLATIN. [Suspect]
     Active Substance: OXALIPLATIN
     Indication: GASTRIC CANCER STAGE IV
     Dosage: UNK UNK, CYCLIC (ONCE EVERY 2 WEEKS)
     Route: 042
     Dates: start: 20191022, end: 20200303
  4. AVELUMAB [Suspect]
     Active Substance: AVELUMAB
     Indication: GASTRIC CANCER STAGE IV
     Dosage: 640 MG, CYCLIC (ONCE EVERY 2 WEEKS)
     Route: 042
     Dates: start: 20191022, end: 20200331
  5. FOLINIC ACID [Suspect]
     Active Substance: LEUCOVORIN
     Indication: GASTRIC CANCER STAGE IV
     Dosage: UNK UNK, CYCLIC (ONCE EVERY 2 WEEKS)
     Route: 042
     Dates: start: 20191022, end: 20200303

REACTIONS (1)
  - Embolism [Recovered/Resolved]

NARRATIVE: CASE EVENT DATE: 20200407
